APPROVED DRUG PRODUCT: MITOMYCIN
Active Ingredient: MITOMYCIN
Strength: 20MG/VIAL
Dosage Form/Route: INJECTABLE;INJECTION
Application: A215687 | Product #002 | TE Code: AP
Applicant: GLAND PHARMA LTD
Approved: Oct 20, 2021 | RLD: No | RS: No | Type: RX